FAERS Safety Report 10944537 (Version 1)
Quarter: 2015Q1

REPORT INFORMATION
  Report Type: Spontaneous
  Country: US (occurrence: US)
  Receive Date: 20150323
  Receipt Date: 20150323
  Transmission Date: 20150721
  Serious: Yes (Hospitalization, Other)
  Sender: FDA-Public Use
  Company Number: US-AMGEN-USASP2015026258

PATIENT
  Age: 22 Year
  Sex: Male

DRUGS (1)
  1. ENBREL [Suspect]
     Active Substance: ETANERCEPT
     Indication: ANKYLOSING SPONDYLITIS
     Dosage: 25 MG, Q3WK
     Route: 065
     Dates: start: 20131020

REACTIONS (4)
  - Blood test abnormal [Not Recovered/Not Resolved]
  - Injection site pain [Recovered/Resolved]
  - Staphylococcal bacteraemia [Recovered/Resolved]
  - Costochondritis [Recovered/Resolved]

NARRATIVE: CASE EVENT DATE: 201409
